FAERS Safety Report 21086338 (Version 6)
Quarter: 2022Q4

REPORT INFORMATION
  Report Type: Spontaneous
  Country: US (occurrence: US)
  Receive Date: 20220715
  Receipt Date: 20221004
  Transmission Date: 20230113
  Serious: No
  Sender: FDA-Public Use
  Company Number: US-GSKCCFUS-Case-01432777_AE-82275

PATIENT
  Age: 79 Year
  Sex: Female

DRUGS (1)
  1. ADVAIR DISKUS [Suspect]
     Active Substance: FLUTICASONE PROPIONATE\SALMETEROL XINAFOATE
     Indication: Product used for unknown indication
     Dosage: UNK 250/50MCG
     Dates: start: 20220705

REACTIONS (7)
  - Dyspnoea [Unknown]
  - Device defective [Unknown]
  - Confusional state [Unknown]
  - Ill-defined disorder [Unknown]
  - Device difficult to use [Unknown]
  - Drug ineffective [Unknown]
  - Product complaint [Unknown]

NARRATIVE: CASE EVENT DATE: 20220701
